FAERS Safety Report 4866050-6 (Version None)
Quarter: 2005Q4

REPORT INFORMATION
  Report Type: 
  Country: None (occurrence: None)
  Receive Date: 20051221
  Receipt Date: 20051209
  Transmission Date: 20060501
  Serious: Yes (Hospitalization)
  Sender: FDA-Public Use
  Company Number: KII-2005-0020252

PATIENT
  Age: 48 Year
  Sex: Male

DRUGS (14)
  1. MORPHINE SULFATE [Suspect]
  2. SUMATRIPTAN SUCCINATE [Suspect]
  3. TOPIRAMATE [Suspect]
  4. NIACIN [Suspect]
  5. QUETIAPINE FUMARATE [Suspect]
  6. LEVOTHYROXINE SODIUM [Suspect]
  7. VALPROIC ACID [Suspect]
  8. METFORMIN HCL [Suspect]
  9. ACETAMINOPHEN AND OXYCODONE HCL [Suspect]
  10. LISINOPRIL [Suspect]
  11. FUROSEMIDE [Suspect]
  12. SERUMLIPIDREDUCING AGENTS () [Suspect]
  13. ASPIRIN [Suspect]
  14. AMPHETAMINE SULFATE [Suspect]

REACTIONS (24)
  - AGGRESSION [None]
  - AMMONIA ABNORMAL [None]
  - ASTERIXIS [None]
  - BLOOD BICARBONATE ABNORMAL [None]
  - BLOOD BILIRUBIN ABNORMAL [None]
  - BLOOD CALCIUM ABNORMAL [None]
  - BLOOD GLUCOSE ABNORMAL [None]
  - BLOOD KETONE BODY INCREASED [None]
  - BLOOD PRESSURE SYSTOLIC INCREASED [None]
  - CONFUSIONAL STATE [None]
  - DIARRHOEA [None]
  - HAEMATOCRIT ABNORMAL [None]
  - HAEMATOCRIT DECREASED [None]
  - HAEMOGLOBIN ABNORMAL [None]
  - HEART RATE INCREASED [None]
  - KETONURIA [None]
  - KETOSIS [None]
  - METABOLIC ACIDOSIS [None]
  - NAUSEA [None]
  - OCCULT BLOOD POSITIVE [None]
  - OLIGURIA [None]
  - PERSEVERATION [None]
  - RENAL FAILURE ACUTE [None]
  - VOMITING [None]
